FAERS Safety Report 9879503 (Version 1)
Quarter: 2014Q1

REPORT INFORMATION
  Report Type: Spontaneous
  Country: US (occurrence: US)
  Receive Date: 20140206
  Receipt Date: 20140206
  Transmission Date: 20141002
  Serious: No
  Sender: FDA-Public Use
  Company Number: US-GILEAD-2013-0086900

PATIENT
  Age: 23 Year
  Sex: Male

DRUGS (1)
  1. STRIBILD [Suspect]
     Indication: ACQUIRED IMMUNODEFICIENCY SYNDROME
     Dosage: 1 DF, UNK
     Route: 065

REACTIONS (1)
  - Incorrect dose administered [Unknown]
